FAERS Safety Report 5236875-6 (Version None)
Quarter: 2007Q1

REPORT INFORMATION
  Report Type: 
  Country: None (occurrence: None)
  Receive Date: 20070213
  Receipt Date: 20060502
  Transmission Date: 20070707
  Serious: No
  Sender: FDA-Public Use
  Company Number: US-BRISTOL-MYERS SQUIBB COMPANY-13364039

PATIENT
  Age: 80 Year
  Sex: Female

DRUGS (1)
  1. KENALOG [Suspect]
     Indication: RASH ERYTHEMATOUS
     Route: 003

REACTIONS (1)
  - DRUG INEFFECTIVE [None]
